FAERS Safety Report 8601868-5 (Version None)
Quarter: 2012Q3

REPORT INFORMATION
  Report Type: 
  Country: None (occurrence: None)
  Receive Date: 20120817
  Receipt Date: 20120510
  Transmission Date: 20120928
  Serious: No
  Sender: FDA-Public Use
  Company Number: US-BRISTOL-MYERS SQUIBB COMPANY-16584385

PATIENT
  Age: 65 Year
  Sex: Male
  Weight: 85 kg

DRUGS (2)
  1. MORPHINE [Concomitant]
     Indication: BACK PAIN
  2. SPRYCEL [Suspect]
     Indication: CHRONIC MYELOID LEUKAEMIA
     Dates: start: 20120201

REACTIONS (2)
  - PERIORBITAL HAEMORRHAGE [None]
  - PETECHIAE [None]
